FAERS Safety Report 4871837-X (Version None)
Quarter: 2006Q1

REPORT INFORMATION
  Report Type: 
  Country: None (occurrence: None)
  Receive Date: 20060104
  Receipt Date: 20051005
  Transmission Date: 20060701
  Serious: Yes (Hospitalization, Disabling)
  Sender: FDA-Public Use
  Company Number: US-MERCK-0510USA04120

PATIENT
  Age: 55 Year
  Sex: Male
  Weight: 136 kg

DRUGS (5)
  1. VIOXX [Suspect]
     Indication: PAIN
     Route: 048
     Dates: start: 20000303, end: 20000318
  2. VICODIN [Concomitant]
     Route: 065
  3. INSULIN [Concomitant]
     Route: 065
  4. AVANDIA [Concomitant]
     Route: 065
  5. LOTENSIN [Concomitant]
     Route: 065

REACTIONS (11)
  - CARDIAC FAILURE CONGESTIVE [None]
  - CARDIOVASCULAR DISORDER [None]
  - DRUG HYPERSENSITIVITY [None]
  - FALL [None]
  - GROIN ABSCESS [None]
  - HYPERSENSITIVITY [None]
  - HYPOAESTHESIA [None]
  - JOINT SWELLING [None]
  - MENISCUS LESION [None]
  - PAIN [None]
  - PROCEDURAL PAIN [None]
